FAERS Safety Report 7280187-6 (Version None)
Quarter: 2011Q1

REPORT INFORMATION
  Report Type: 
  Country: None (occurrence: None)
  Receive Date: 20110208
  Receipt Date: 20110131
  Transmission Date: 20110831
  Serious: Yes (Other)
  Sender: FDA-Public Use
  Company Number: US-JNJFOC-20110201182

PATIENT
  Sex: Male

DRUGS (3)
  1. LEVAQUIN [Suspect]
     Indication: SINUSITIS
     Route: 065
  2. PREDNISONE [Suspect]
     Indication: SINUSITIS
     Route: 065
  3. AVELOX [Suspect]
     Indication: SINUSITIS
     Route: 065

REACTIONS (3)
  - LIGAMENT LAXITY [None]
  - LIGAMENT RUPTURE [None]
  - JOINT INSTABILITY [None]
